FAERS Safety Report 12434267 (Version 2)
Quarter: 2016Q2

REPORT INFORMATION
  Report Type: Report from Study
  Country: IT (occurrence: IT)
  Receive Date: 20160603
  Receipt Date: 20160617
  Transmission Date: 20160815
  Serious: Yes (Hospitalization, Other)
  Sender: FDA-Public Use
  Company Number: IT-TEVA-664089ACC

PATIENT
  Age: 70 Year
  Sex: Female

DRUGS (16)
  1. METHYLPREDNISOLONE. [Concomitant]
     Active Substance: METHYLPREDNISOLONE
     Dosage: 120 MILLIGRAM DAILY;
     Dates: start: 20160322, end: 20160322
  2. ACYCLOVIR. [Concomitant]
     Active Substance: ACYCLOVIR
     Indication: PROPHYLAXIS
     Dosage: 400 MILLIGRAM DAILY;
     Route: 048
     Dates: start: 20160322
  3. RAMIPRIL. [Concomitant]
     Active Substance: RAMIPRIL
  4. ATENOLOL. [Concomitant]
     Active Substance: ATENOLOL
  5. MYOCET [Suspect]
     Active Substance: DOXORUBICIN
     Indication: CHEMOTHERAPY
     Dosage: 50 MILLIGRAM DAILY;
     Route: 042
     Dates: start: 20160322, end: 20160322
  6. RITUXIMAB [Concomitant]
     Active Substance: RITUXIMAB
     Dosage: 700 MILLIGRAM DAILY;
     Dates: start: 20160325, end: 20160325
  7. VINCRISTINA TEVA [Suspect]
     Active Substance: VINCRISTINE
     Indication: CHEMOTHERAPY
     Dosage: 1.5 MILLIGRAM DAILY;
     Route: 042
     Dates: start: 20160322, end: 20160322
  8. MESNA. [Concomitant]
     Active Substance: MESNA
     Dosage: 1400 MILLIGRAM DAILY;
     Dates: start: 20160322, end: 20160322
  9. LONQUEX [Suspect]
     Active Substance: LIPEGFILGRASTIM
     Indication: PROPHYLAXIS
     Dosage: 6 MILLIGRAM DAILY;
     Route: 058
     Dates: start: 20160324, end: 20160324
  10. ENDOXAN [Suspect]
     Active Substance: CYCLOPHOSPHAMIDE
     Indication: CHEMOTHERAPY
     Dosage: 1400 MILLIGRAM DAILY;
     Route: 042
     Dates: start: 20160322, end: 20160322
  11. DELTACORTENE [Concomitant]
     Active Substance: PREDNISONE
     Indication: PROPHYLAXIS
     Dosage: 75 MILLIGRAM DAILY;
     Route: 048
     Dates: start: 20160323
  12. RISPERDAL [Concomitant]
     Active Substance: RISPERIDONE
  13. BACTRIM [Concomitant]
     Active Substance: SULFAMETHOXAZOLE\TRIMETHOPRIM
     Indication: PROPHYLAXIS
     Dosage: 1 DOSAGE FORMS DAILY;
     Route: 048
     Dates: start: 20160322
  14. DIUREMID [Concomitant]
     Indication: PROPHYLAXIS
     Dosage: 5 MILLIGRAM DAILY;
     Route: 048
     Dates: start: 20160322
  15. ELOPRAM [Concomitant]
     Active Substance: CITALOPRAM HYDROBROMIDE
  16. PANTORC [Concomitant]
     Active Substance: PANTOPRAZOLE SODIUM
     Indication: PROPHYLAXIS
     Dosage: 40 MILLIGRAM DAILY;
     Route: 048
     Dates: start: 19900101

REACTIONS (2)
  - Acute kidney injury [Recovered/Resolved]
  - Sepsis [Recovered/Resolved]

NARRATIVE: CASE EVENT DATE: 20160401
